FAERS Safety Report 8349164-8 (Version None)
Quarter: 2012Q2

REPORT INFORMATION
  Report Type: 
  Country: None (occurrence: None)
  Receive Date: 20120510
  Receipt Date: 20120430
  Transmission Date: 20120825
  Serious: Yes (Other)
  Sender: FDA-Public Use
  Company Number: US-JNJFOC-20120501150

PATIENT
  Age: 45 Year
  Sex: Male

DRUGS (1)
  1. STELARA [Suspect]
     Indication: PSORIASIS
     Dosage: STARTED 1-1 AND A HALF YEARS AGO
     Route: 058

REACTIONS (1)
  - HERPES ZOSTER [None]
